FAERS Safety Report 4511454-4 (Version None)
Quarter: 2004Q4

REPORT INFORMATION
  Report Type: 
  Country: None (occurrence: None)
  Receive Date: 20041129
  Receipt Date: 20040818
  Transmission Date: 20050328
  Serious: No
  Sender: FDA-Public Use
  Company Number: US-BRISTOL-MYERS SQUIBB COMPANY-12676078

PATIENT
  Age: 24 Year
  Sex: Female

DRUGS (3)
  1. ABILIFY [Suspect]
     Indication: AGITATION
     Route: 048
     Dates: start: 20040808, end: 20040813
  2. ABILIFY [Suspect]
     Indication: AFFECT LABILITY
     Route: 048
     Dates: start: 20040808, end: 20040813
  3. KLONOPIN [Concomitant]

REACTIONS (3)
  - AKATHISIA [None]
  - INSOMNIA [None]
  - MACROGLOSSIA [None]
